FAERS Safety Report 4713992-8 (Version None)
Quarter: 2005Q3

REPORT INFORMATION
  Report Type: 
  Country: None (occurrence: None)
  Receive Date: 20050714
  Receipt Date: 20050131
  Transmission Date: 20060218
  Serious: Yes (Other)
  Sender: FDA-Public Use
  Company Number: US-BOEHRINGER INGELHEIM PHARMACEUTICALS, INC.-2005-BP-01428BP

PATIENT
  Sex: Male

DRUGS (2)
  1. ATROVENT [Suspect]
     Indication: ASTHMA
     Route: 055
  2. ATROVENT [Suspect]
     Route: 055

REACTIONS (1)
  - ASTHMA [None]
